FAERS Safety Report 4365071-X (Version None)
Quarter: 2004Q2

REPORT INFORMATION
  Report Type: 
  Country: None (occurrence: None)
  Receive Date: 20040521
  Receipt Date: 20040506
  Transmission Date: 20050107
  Serious: Yes (Other)
  Sender: FDA-Public Use
  Company Number: JP-JNJFOC-20040501482

PATIENT
  Age: 27 Year
  Sex: Female

DRUGS (7)
  1. FENTANYL [Suspect]
     Indication: CANCER PAIN
     Dosage: 75 MG, 1 IN 3 DAY, TRANSDERMAL
     Route: 062
     Dates: start: 20040504
  2. FENTANYL CITRATE [Suspect]
     Indication: CANCER PAIN
     Dosage: 10 MG, 1 IN 1  DAY, ITNRAVENOUS
     Route: 042
     Dates: start: 20040427
  3. DEXAMETHASONE [Concomitant]
  4. AMITRIPTYLINE HYDROCHLORIDE [Concomitant]
  5. KETAMINE HYDROCHLORIDE (KETAMINE HYDROCHLORIDE0 [Concomitant]
  6. CLONAZEPAM [Concomitant]
  7. LOXOPROFEN SODIUM (LOXOPROFEN SODIUM) [Concomitant]

REACTIONS (5)
  - PAIN [None]
  - PLATELET COUNT DECREASED [None]
  - RESPIRATORY DEPRESSION [None]
  - RESPIRATORY RATE DECREASED [None]
  - SOMNOLENCE [None]
